FAERS Safety Report 7485761-X (Version None)
Quarter: 2011Q2

REPORT INFORMATION
  Report Type: 
  Country: None (occurrence: None)
  Receive Date: 20110517
  Receipt Date: 20081105
  Transmission Date: 20111010
  Serious: Yes (Death, Other)
  Sender: FDA-Public Use
  Company Number: US-BAYER-2011-009270

PATIENT
  Age: 60 Year
  Sex: Male

DRUGS (6)
  1. CAPTOPRIL [Concomitant]
     Indication: RENAL IMPAIRMENT
     Dosage: 50MG TWO TABLETS TWICE DAILY
     Route: 048
     Dates: start: 20000207, end: 20000717
  2. TRASYLOL [Suspect]
     Indication: CORONARY ARTERY BYPASS
     Dosage: UNK
     Dates: start: 20001009
  3. HUMULIN 70/30 [Concomitant]
     Dosage: SLIDING SCALE
  4. CLONIDINE [Concomitant]
     Dosage: 0.2MG TWICE DAILY
     Route: 048
     Dates: start: 20000207
  5. NORVASC [Concomitant]
     Dosage: 10MG DAILY
     Route: 048
     Dates: start: 20000207
  6. TOPROL-XL [Concomitant]
     Dosage: 50MG DAILY
     Route: 048
     Dates: start: 20000207

REACTIONS (12)
  - UNEVALUABLE EVENT [None]
  - FEAR [None]
  - INJURY [None]
  - EMOTIONAL DISTRESS [None]
  - STRESS [None]
  - DEATH [None]
  - ANXIETY [None]
  - RENAL FAILURE [None]
  - RENAL INJURY [None]
  - RENAL IMPAIRMENT [None]
  - PAIN [None]
  - ANHEDONIA [None]
